APPROVED DRUG PRODUCT: PLEGINE
Active Ingredient: PHENDIMETRAZINE TARTRATE
Strength: 35MG **Federal Register determination that product was not discontinued or withdrawn for safety or effectiveness reasons**
Dosage Form/Route: TABLET;ORAL
Application: N012248 | Product #001
Applicant: WYETH AYERST LABORATORIES
Approved: Approved Prior to Jan 1, 1982 | RLD: No | RS: No | Type: DISCN